FAERS Safety Report 5498940-8 (Version None)
Quarter: 2007Q4

REPORT INFORMATION
  Report Type: 
  Country: None (occurrence: None)
  Receive Date: 20071026
  Receipt Date: 20070508
  Transmission Date: 20080405
  Serious: No
  Sender: FDA-Public Use
  Company Number: A0650416A

PATIENT
  Age: 63 Year

DRUGS (4)
  1. ADVAIR DISKUS 100/50 [Suspect]
     Indication: ASTHMA
     Route: 055
     Dates: start: 20051001, end: 20060101
  2. FLOVENT [Suspect]
     Indication: ASTHMA
     Dosage: 110MCG TWICE PER DAY
     Route: 055
     Dates: start: 20060101, end: 20070501
  3. SINGULAIR [Concomitant]
  4. ZOCOR [Concomitant]

REACTIONS (2)
  - DYSPHONIA [None]
  - ORAL MUCOSAL ERUPTION [None]
